FAERS Safety Report 6269911-9 (Version None)
Quarter: 2009Q3

REPORT INFORMATION
  Report Type: 
  Country: None (occurrence: None)
  Receive Date: 20090716
  Receipt Date: 20090707
  Transmission Date: 20100115
  Serious: Yes (Other)
  Sender: FDA-Public Use
  Company Number: PHEH2007US12652

PATIENT
  Sex: Female

DRUGS (15)
  1. ZOMETA [Suspect]
     Indication: MULTIPLE MYELOMA
     Dosage: UNK
  2. ATIVAN [Concomitant]
  3. VICODIN [Concomitant]
  4. AMBIEN [Concomitant]
  5. LEVOTHYROXINE SODIUM [Concomitant]
  6. ACIPHEX [Concomitant]
  7. ZOLOFT [Concomitant]
     Dosage: UNK
  8. XELODA [Concomitant]
     Dosage: 150MG BID
  9. ASPIRIN [Concomitant]
  10. AMPICILLIN [Concomitant]
     Dosage: 875MG BID X + DAYS
  11. RADIATION [Concomitant]
  12. ABRAXANE [Concomitant]
     Dosage: WEEKLY
  13. AVASTIN [Concomitant]
  14. NORCO [Concomitant]
  15. CYMBALTA [Concomitant]

REACTIONS (21)
  - ACANTHOLYSIS [None]
  - ANHEDONIA [None]
  - ANXIETY [None]
  - ARTHRALGIA [None]
  - BONE PAIN [None]
  - CYST [None]
  - DEFORMITY [None]
  - DISCOMFORT [None]
  - EMOTIONAL DISTRESS [None]
  - EYE PAIN [None]
  - FIBROMYALGIA [None]
  - HYPOPHAGIA [None]
  - INJURY [None]
  - JOINT STIFFNESS [None]
  - NASAL DISORDER [None]
  - OEDEMA [None]
  - OSTEONECROSIS [None]
  - PAIN [None]
  - PYREXIA [None]
  - TOOTH REPAIR [None]
  - TOOTHACHE [None]
